FAERS Safety Report 9801431 (Version 2)
Quarter: 2014Q1

REPORT INFORMATION
  Report Type: Spontaneous
  Country: US (occurrence: US)
  Receive Date: 20140107
  Receipt Date: 20140107
  Transmission Date: 20141002
  Serious: Yes (Disabling)
  Sender: FDA-Public Use
  Company Number: US-GE HEALTHCARE MEDICAL DIAGNOSTICS-OSCN-PR-0805S-0309

PATIENT
  Age: 70 Year
  Sex: Female

DRUGS (15)
  1. GADOLINIUM (UNSPECIFIED) [Suspect]
     Indication: PRODUCT USED FOR UNKNOWN INDICATION
     Route: 042
     Dates: start: 20030702, end: 20030702
  2. MAGNEVIST [Suspect]
     Indication: PERIPHERAL VASCULAR DISORDER
     Route: 042
     Dates: start: 20010614, end: 20010614
  3. MAGNEVIST [Suspect]
     Indication: SKIN ULCER
     Route: 042
     Dates: start: 20060517, end: 20060517
  4. MAGNEVIST [Suspect]
     Indication: WOUND
     Route: 042
     Dates: start: 20060901, end: 20060901
  5. MAGNEVIST [Suspect]
     Indication: RENAL ARTERY STENOSIS
     Route: 042
     Dates: start: 20060907, end: 20060907
  6. MAGNEVIST [Suspect]
     Indication: IMPAIRED HEALING
  7. PLAVIX [Concomitant]
  8. METOPROLOL [Concomitant]
  9. AVAPRO [Concomitant]
  10. HECTOROL [Concomitant]
  11. NEURONTIN [Concomitant]
  12. RENVELA [Concomitant]
  13. DILAUDID [Concomitant]
  14. AMIODARONE [Concomitant]
  15. PROCRIT [Concomitant]

REACTIONS (1)
  - Nephrogenic systemic fibrosis [Not Recovered/Not Resolved]
